FAERS Safety Report 23068988 (Version 1)
Quarter: 2023Q4

REPORT INFORMATION
  Report Type: Report from Study
  Country: CN (occurrence: None)
  Receive Date: 20231016
  Receipt Date: 20231016
  Transmission Date: 20240109
  Serious: Yes (Death, Hospitalization)
  Sender: FDA-Public Use
  Company Number: CN-ROCHE-3317833

PATIENT
  Age: 66 Year
  Sex: Male

DRUGS (3)
  1. RITUXIMAB [Suspect]
     Active Substance: RITUXIMAB
     Indication: Mantle cell lymphoma
     Dosage: RECEIVED ON DAY 1 OF EACH 28-DAY CYCLE, SUBSEQUENT DOSE OF RITUXIMAB WAS ADMINISTERED ON 07/FEB/2023
     Route: 041
     Dates: start: 20230110, end: 20230110
  2. ACALABRUTINIB [Suspect]
     Active Substance: ACALABRUTINIB
     Indication: Mantle cell lymphoma
     Dosage: RECEIVED DOSE ON 18/FEB/2023
     Route: 048
     Dates: start: 20230110, end: 20230209
  3. BENDAMUSTINE [Suspect]
     Active Substance: BENDAMUSTINE
     Indication: Mantle cell lymphoma
     Dosage: 1 AND 2 OF EACH 28-DAY CYCLE?SUBSEQUENT DOSE OF BENDAMUSTINE WAS ADMINISTERED ON 11/JAN/2023 TO 11/J
     Route: 042
     Dates: start: 20230110, end: 20230110

REACTIONS (1)
  - COVID-19 pneumonia [Fatal]

NARRATIVE: CASE EVENT DATE: 20230309
